FAERS Safety Report 5003712-4 (Version None)
Quarter: 2006Q2

REPORT INFORMATION
  Report Type: 
  Country: None (occurrence: None)
  Receive Date: 20060516
  Receipt Date: 20060410
  Transmission Date: 20061013
  Serious: Yes (Hospitalization, Disabling, Other)
  Sender: FDA-Public Use
  Company Number: US-MERCK-0604USA01632

PATIENT
  Age: 60 Year
  Sex: Female
  Weight: 61 kg

DRUGS (10)
  1. VIOXX [Suspect]
     Indication: ARTHRITIS
     Route: 048
     Dates: start: 20011129, end: 20020125
  2. LIPITOR [Concomitant]
     Route: 065
  3. AZMACORT [Concomitant]
     Route: 065
  4. ALBUTEROL [Concomitant]
     Route: 065
  5. VITAMIN E [Concomitant]
     Route: 065
  6. PREVACID [Concomitant]
     Route: 065
  7. ECOTRIN [Concomitant]
     Route: 065
  8. AMBIEN [Concomitant]
     Route: 065
  9. ZYRTEC [Concomitant]
     Route: 065
  10. TYLENOL (CAPLET) [Concomitant]
     Route: 065

REACTIONS (2)
  - CORONARY ARTERY DISEASE [None]
  - MYOCARDIAL INFARCTION [None]
